FAERS Safety Report 8921936 (Version 1)
Quarter: 2012Q4

REPORT INFORMATION
  Report Type: Spontaneous
  Country: US (occurrence: None)
  Receive Date: 20121119
  Receipt Date: 20121119
  Transmission Date: 20130627
  Serious: Yes (Hospitalization)
  Sender: FDA-Public Use
  Company Number: None

PATIENT
  Age: 50 Year
  Sex: Female
  Weight: 70 kg

DRUGS (1)
  1. VOTRIENT [Suspect]
     Route: 048
     Dates: start: 20121113

REACTIONS (6)
  - Hepatotoxicity [None]
  - Hepatic enzyme increased [None]
  - Jaundice [None]
  - Cachexia [None]
  - Weight decreased [None]
  - Hepatic failure [None]
